FAERS Safety Report 9759577 (Version 1)
Quarter: 2013Q4

REPORT INFORMATION
  Report Type: Spontaneous
  Country: US (occurrence: US)
  Receive Date: 20131216
  Receipt Date: 20131216
  Transmission Date: 20140711
  Serious: No
  Sender: FDA-Public Use
  Company Number: US-GILEAD-2010-0028089

PATIENT
  Sex: Female

DRUGS (17)
  1. LETAIRIS [Suspect]
     Indication: PULMONARY ARTERIAL HYPERTENSION
     Route: 048
     Dates: start: 20090305
  2. ASPIRIN [Concomitant]
  3. LISINOPRIL [Concomitant]
  4. COREG [Concomitant]
  5. ASMANEX [Concomitant]
  6. WELLBUTRIN [Concomitant]
  7. ABILIFY [Concomitant]
  8. XANAX [Concomitant]
  9. KAPIDEX [Concomitant]
  10. SAVELLA [Concomitant]
  11. MIRAPEX [Concomitant]
  12. AMBIEN [Concomitant]
  13. SOMA [Concomitant]
  14. TOPAMAX [Concomitant]
  15. TYLENOL [Concomitant]
  16. IBUPROFEN [Concomitant]
  17. GLUCOSAMINE [Concomitant]

REACTIONS (1)
  - Cough [Unknown]
